FAERS Safety Report 19736397 (Version 1)
Quarter: 2021Q3

REPORT INFORMATION
  Report Type: Spontaneous
  Country: US (occurrence: US)
  Receive Date: 20210822
  Receipt Date: 20210822
  Transmission Date: 20211014
  Serious: Yes (Other)
  Sender: FDA-Public Use
  Company Number: None

PATIENT
  Sex: Male

DRUGS (21)
  1. ZETIA [Concomitant]
     Active Substance: EZETIMIBE
  2. REPATHA [Suspect]
     Active Substance: EVOLOCUMAB
     Indication: TYPE IIA HYPERLIPIDAEMIA
     Route: 058
     Dates: start: 20210309
  3. VITAMIN D3 [Concomitant]
     Active Substance: CHOLECALCIFEROL
  4. TYLENOL [Concomitant]
     Active Substance: ACETAMINOPHEN
  5. ZYRTEC ALLGY [Concomitant]
  6. CARDIZEM [Concomitant]
     Active Substance: DILTIAZEM HYDROCHLORIDE
  7. CENTRUM SILV [Concomitant]
  8. PLAVIX [Concomitant]
     Active Substance: CLOPIDOGREL BISULFATE
  9. FAMOTIDINE. [Concomitant]
     Active Substance: FAMOTIDINE
  10. NITROGLYCERN SUB [Concomitant]
  11. VOLTAREN [Concomitant]
     Active Substance: DICLOFENAC SODIUM
  12. ZETIA [Concomitant]
     Active Substance: EZETIMIBE
  13. ALLEGRA [Concomitant]
     Active Substance: FEXOFENADINE HYDROCHLORIDE
  14. COMBIVENT [Concomitant]
     Active Substance: ALBUTEROL SULFATE\IPRATROPIUM BROMIDE
  15. COENZYME Q10 [Concomitant]
     Active Substance: DIETARY SUPPLEMENT\UBIDECARENONE
  16. ELIQUIS [Concomitant]
     Active Substance: APIXABAN
  17. FLONASE ALGY SPR [Concomitant]
  18. FISH OIL [Concomitant]
     Active Substance: FISH OIL
  19. PATADAY SOL [Concomitant]
  20. PRESERVISION [Concomitant]
     Active Substance: MINERALS\VITAMINS
  21. SOTALOL HCL [Concomitant]
     Active Substance: SOTALOL

REACTIONS (1)
  - Cardiac pacemaker insertion [None]
